FAERS Safety Report 8592137-0 (Version None)
Quarter: 2012Q3

REPORT INFORMATION
  Report Type: 
  Country: None (occurrence: None)
  Receive Date: 20120814
  Receipt Date: 20120810
  Transmission Date: 20120928
  Serious: Yes (Hospitalization)
  Sender: FDA-Public Use
  Company Number: IT-SANOFI-AVENTIS-2012SA057453

PATIENT
  Age: 78 Year
  Sex: Male

DRUGS (6)
  1. TAMSULOSIN HYDROCHLORIDE [Suspect]
     Dosage: STRENGTH- 0.4 MG HARD CAPSULES MODIFIED RELEASE
     Route: 048
     Dates: start: 20110628
  2. RABEPRAZOLE SODIUM [Concomitant]
     Dosage: STRENGTH: 20 MG
  3. IRBESARTAN [Suspect]
     Indication: HYPERTENSION
     Route: 048
     Dates: start: 20110628, end: 20120627
  4. LASIX [Suspect]
     Dosage: DOSE:1 UNIT(S)
     Route: 048
     Dates: start: 20110628
  5. MAGNESIUM HYDROXIDE TAB [Concomitant]
  6. ENALAPRIL MALEATE [Suspect]
     Indication: HYPERTENSION
     Dosage: STRENGTH- 5 MG TABLET DOSE:1 UNIT(S)
     Route: 048
     Dates: start: 20110628

REACTIONS (3)
  - ORTHOSTATIC HYPOTENSION [None]
  - PRESYNCOPE [None]
  - TACHYCARDIA [None]
